FAERS Safety Report 7237471-1 (Version None)
Quarter: 2011Q1

REPORT INFORMATION
  Report Type: 
  Country: None (occurrence: None)
  Receive Date: 20110121
  Receipt Date: 20110113
  Transmission Date: 20110831
  Serious: Yes (Hospitalization, Other)
  Sender: FDA-Public Use
  Company Number: US-ASTRAZENECA-2005UW13295

PATIENT
  Age: 590 Month
  Sex: Male
  Weight: 158.8 kg

DRUGS (24)
  1. CLONAZEPAM [Concomitant]
     Dates: start: 20030101
  2. CLONAZEPAM [Concomitant]
     Dates: start: 20010223
  3. GLUCOVANCE [Concomitant]
     Indication: DIABETES MELLITUS
     Dosage: 2.5-500 MG TWO TIMES A DAY
     Route: 048
     Dates: start: 20040212
  4. LISINOPRIL [Concomitant]
     Indication: ESSENTIAL HYPERTENSION
     Route: 048
     Dates: start: 20040212
  5. CELEXA [Concomitant]
     Dates: start: 20010223
  6. LISINOPRIL [Concomitant]
     Indication: HYPERTENSION
     Route: 048
     Dates: start: 20040212
  7. LISINOPRIL [Concomitant]
     Route: 048
     Dates: start: 20041208
  8. THORAZINE [Concomitant]
     Dates: start: 19900101
  9. GABAPENTIN [Concomitant]
     Dates: start: 19960101
  10. TEMAZPAM [Concomitant]
     Dates: start: 20060101
  11. NEURONTIN [Concomitant]
     Route: 048
     Dates: start: 19990823
  12. AMBIEN [Concomitant]
     Indication: INSOMNIA
     Route: 048
     Dates: start: 19951208
  13. LEXAPRO [Concomitant]
     Route: 048
     Dates: start: 20040415
  14. SERENTIL [Concomitant]
     Indication: ANXIETY
     Dates: end: 20010223
  15. PROVIGIL [Concomitant]
     Dates: start: 20041208
  16. SEROQUEL [Suspect]
     Indication: ANXIETY
     Dosage: 100 - 300 MG
     Route: 048
     Dates: start: 20000101
  17. SEROQUEL [Suspect]
     Dosage: 100 MG 1/2 BID
     Route: 048
     Dates: start: 20010223
  18. ULTRAM [Concomitant]
     Indication: PAIN
     Route: 048
     Dates: start: 20021119
  19. ZOCOR [Concomitant]
     Indication: HYPERCHOLESTEROLAEMIA
     Route: 048
     Dates: start: 20050105
  20. VALIUM [Concomitant]
     Indication: ANXIETY
  21. MIRTAZAPINE [Concomitant]
     Dates: start: 20060101
  22. LISINOPRIL [Concomitant]
     Route: 048
     Dates: start: 20041208
  23. ADDERALL 10 [Concomitant]
     Dates: start: 20010223
  24. TRILEPTAL [Concomitant]
     Dates: start: 20060601

REACTIONS (7)
  - NEUROPATHY PERIPHERAL [None]
  - TYPE 1 DIABETES MELLITUS [None]
  - DIABETIC NEUROPATHY [None]
  - DIABETIC KETOACIDOSIS [None]
  - HYPERGLYCAEMIA [None]
  - ILL-DEFINED DISORDER [None]
  - TYPE 2 DIABETES MELLITUS [None]
